FAERS Safety Report 15612681 (Version 1)
Quarter: 2018Q4

REPORT INFORMATION
  Report Type: Other
  Country: JP (occurrence: JP)
  Receive Date: 20181113
  Receipt Date: 20181113
  Transmission Date: 20190205
  Serious: Yes (Death, Life-Threatening, Hospitalization)
  Sender: FDA-Public Use
  Company Number: JP-DSJP-DSJ-2018-147808

PATIENT

DRUGS (12)
  1. ETIZOLAM [Suspect]
     Active Substance: ETIZOLAM
     Indication: INSOMNIA
     Dosage: 1 MG, QD
     Route: 048
  2. TEPRENONE [Concomitant]
     Active Substance: TEPRENONE
     Dosage: 50-150, QD-TID
     Route: 065
     Dates: start: 20150607
  3. FUROSEMIDE. [Concomitant]
     Active Substance: FUROSEMIDE
     Dosage: 20 MG, QD
     Route: 065
     Dates: start: 20160513
  4. MEPTIN AIR [Concomitant]
     Active Substance: PROCATEROL HYDROCHLORIDE
     Dosage: 20 ?G, AS NEEDED, AT TIME OF SEIZURE
     Route: 065
     Dates: start: 20180601
  5. AMLODIPINE                         /00972402/ [Concomitant]
     Active Substance: AMLODIPINE BESYLATE
     Dosage: 5 MG, QD
     Route: 065
     Dates: start: 20180512
  6. OLMETEC OD [Suspect]
     Active Substance: OLMESARTAN MEDOXOMIL
     Indication: HYPERTENSION
     Dosage: 20 MG, QD
     Route: 065
     Dates: end: 20180508
  7. OLMETEC OD [Suspect]
     Active Substance: OLMESARTAN MEDOXOMIL
     Dosage: 20 MG, QD
     Route: 065
     Dates: start: 20180512
  8. TS-1 [Suspect]
     Active Substance: GIMERACIL\OTERACIL\TEGAFUR
     Dosage: 120 MG, 2 WEEKS ADMINISTRATION, 1 WEEK INTERRUPTION
     Route: 048
     Dates: start: 20180512, end: 20180525
  9. AMLODIPINE                         /00972402/ [Concomitant]
     Active Substance: AMLODIPINE BESYLATE
     Dosage: 5 MG, QD
     Route: 065
     Dates: end: 20180508
  10. TS-1 [Suspect]
     Active Substance: GIMERACIL\OTERACIL\TEGAFUR
     Indication: BREAST CANCER RECURRENT
     Dosage: 120 MG, 2 WEEKS ADMINISTRATION, 1 WEEK INTERRUPTION
     Route: 048
     Dates: start: 20160813, end: 20180330
  11. HALFDIGOXIN [Concomitant]
     Active Substance: DIGOXIN
     Dosage: 0.0625 MG, QD
     Route: 065
  12. LOXONIN TABLETS 60MG [Suspect]
     Active Substance: LOXOPROFEN
     Indication: PAIN
     Dosage: 60-180MG, UNK
     Route: 048
     Dates: start: 20150607, end: 20180601

REACTIONS (8)
  - Dehydration [Unknown]
  - Duodenal ulcer [Unknown]
  - Acute kidney injury [Not Recovered/Not Resolved]
  - Multiple organ dysfunction syndrome [Fatal]
  - Hepatic function abnormal [Unknown]
  - Hypophagia [Recovering/Resolving]
  - Rhabdomyolysis [Not Recovered/Not Resolved]
  - Pyrexia [Unknown]

NARRATIVE: CASE EVENT DATE: 2018
